FAERS Safety Report 6820696-4 (Version None)
Quarter: 2010Q3

REPORT INFORMATION
  Report Type: 
  Country: None (occurrence: None)
  Receive Date: 20100707
  Receipt Date: 20100622
  Transmission Date: 20110219
  Serious: Yes (Hospitalization)
  Sender: FDA-Public Use
  Company Number: DE-GENENTECH-302732

PATIENT
  Sex: Male
  Weight: 81 kg

DRUGS (9)
  1. RITUXIMAB [Suspect]
     Indication: DIFFUSE LARGE B-CELL LYMPHOMA
     Dosage: 731.29 MG, UNK
     Route: 042
     Dates: start: 20100304, end: 20100518
  2. PLACEBO [Suspect]
     Indication: DIFFUSE LARGE B-CELL LYMPHOMA
     Dosage: UNK
     Route: 042
     Dates: start: 20100304, end: 20100518
  3. CYCLOPHOSPHAMIDE [Suspect]
     Indication: DIFFUSE LARGE B-CELL LYMPHOMA
     Dosage: 1462.57 MG, UNK
     Route: 042
     Dates: start: 20100305, end: 20100518
  4. CYCLOPHOSPHAMIDE [Suspect]
     Dosage: 1462.57 MG, UNK
     Route: 042
     Dates: start: 20100603
  5. PREDNISONE [Suspect]
     Indication: DIFFUSE LARGE B-CELL LYMPHOMA
     Dosage: 100 MG, UNK
     Route: 048
     Dates: start: 20100505, end: 20100518
  6. VINCRISTINE [Suspect]
     Indication: DIFFUSE LARGE B-CELL LYMPHOMA
     Dosage: 2 MG, UNK
     Route: 040
     Dates: start: 20100305, end: 20100518
  7. VINCRISTINE [Suspect]
     Dosage: 2 MG, UNK
     Route: 040
     Dates: start: 20100603
  8. DOXORUBICIN HCL [Suspect]
     Indication: DIFFUSE LARGE B-CELL LYMPHOMA
     Dosage: 97.5 MG, UNK
     Route: 042
     Dates: start: 20100305, end: 20100518
  9. DOXORUBICIN HCL [Suspect]
     Dosage: 97.5 MG, UNK
     Route: 042
     Dates: start: 20100603

REACTIONS (1)
  - NERVOUS SYSTEM DISORDER [None]
